FAERS Safety Report 9237914 (Version 3)
Quarter: 2013Q2

REPORT INFORMATION
  Report Type: Spontaneous
  Country: DE (occurrence: None)
  Receive Date: 20130415
  Receipt Date: 20130430
  Transmission Date: 20140414
  Serious: Yes (Life-Threatening, Hospitalization, Other)
  Sender: FDA-Public Use
  Company Number: 1304-484

PATIENT
  Age: 85 Year
  Sex: 0
  Weight: 65 kg

DRUGS (8)
  1. EYLEA(AFLIBERCEPT) (INJECTION) (AFLIBERCEPT) [Suspect]
     Indication: CHOROIDAL NEOVASCULARISATION
     Dates: start: 20130214, end: 20130214
  2. MARCUMAR (PHENPROCOUMON) [Concomitant]
  3. DIGIMERK (DIGITOXIN) [Concomitant]
  4. METOHEXAL (METOPROLOL TARTRATE) [Concomitant]
  5. FUROSEMIDE [Concomitant]
  6. FUROSEMIDE [Concomitant]
  7. AMLODIPINE [Concomitant]
  8. RAMIPRIL [Concomitant]

REACTIONS (1)
  - Cerebral haemorrhage [None]
